FAERS Safety Report 18363994 (Version 1)
Quarter: 2020Q4

REPORT INFORMATION
  Report Type: Spontaneous
  Country: US (occurrence: US)
  Receive Date: 20201009
  Receipt Date: 20201009
  Transmission Date: 20210114
  Serious: No
  Sender: FDA-Public Use
  Company Number: US-JNJFOC-20201010054

PATIENT
  Sex: Male

DRUGS (4)
  1. RISPERDAL [Suspect]
     Active Substance: RISPERIDONE
     Indication: BIPOLAR DISORDER
     Route: 048
  2. LITHIUM. [Suspect]
     Active Substance: LITHIUM
  3. DEPAKOTE [Suspect]
     Active Substance: DIVALPROEX SODIUM
  4. TEGRETOL [Suspect]
     Active Substance: CARBAMAZEPINE

REACTIONS (1)
  - Weight increased [Unknown]
